FAERS Safety Report 9137430 (Version 1)
Quarter: 2013Q1

REPORT INFORMATION
  Report Type: Spontaneous
  Country: US (occurrence: US)
  Receive Date: 20130219
  Receipt Date: 20130219
  Transmission Date: 20140127
  Serious: No
  Sender: FDA-Public Use
  Company Number: US-BRISTOL-MYERS SQUIBB COMPANY-16821126

PATIENT
  Age: 52 Year
  Sex: Male
  Weight: 92.06 kg

DRUGS (2)
  1. ORENCIA [Suspect]
     Indication: RHEUMATOID ARTHRITIS
     Dosage: LAST INF ON 06JUL12
     Route: 042
     Dates: start: 201204
  2. METHYLPREDNISOLONE [Suspect]
     Dosage: 4 MG IN THE MORNING AND 4 MG IN THE EVENING

REACTIONS (3)
  - Muscle spasms [Unknown]
  - Acne [Unknown]
  - Dizziness [Unknown]
